FAERS Safety Report 7306889-0 (Version None)
Quarter: 2011Q1

REPORT INFORMATION
  Report Type: 
  Country: None (occurrence: None)
  Receive Date: 20110223
  Receipt Date: 20110210
  Transmission Date: 20110831
  Serious: Yes (Hospitalization, Other)
  Sender: FDA-Public Use
  Company Number: US-BIOGENIDEC-2011BI005096

PATIENT
  Sex: Female

DRUGS (2)
  1. AVONEX [Suspect]
     Indication: MULTIPLE SCLEROSIS
     Route: 030
     Dates: start: 20070825
  2. AVONEX [Suspect]
     Route: 030
     Dates: start: 20000801, end: 20051220

REACTIONS (5)
  - CROHN'S DISEASE [None]
  - MEMORY IMPAIRMENT [None]
  - JOINT DISLOCATION [None]
  - WEIGHT INCREASED [None]
  - MULTIPLE SCLEROSIS RELAPSE [None]
